FAERS Safety Report 6519303-X (Version None)
Quarter: 2009Q4

REPORT INFORMATION
  Report Type: 
  Country: None (occurrence: None)
  Receive Date: 20091224
  Receipt Date: 20091224
  Transmission Date: 20100525
  Serious: Yes (Hospitalization)
  Sender: FDA-Public Use
  Company Number: None

PATIENT
  Sex: Female
  Weight: 67 kg

DRUGS (2)
  1. CYCLOPHOSPHAMIDE [Suspect]
     Dosage: 1062 MG
  2. DOXORUBICIN HCL [Suspect]
     Dosage: 106 MG

REACTIONS (8)
  - BACTERIAL INFECTION [None]
  - BRONCHITIS [None]
  - CULTURE POSITIVE [None]
  - ERYTHEMA [None]
  - IMPLANT SITE REACTION [None]
  - NEUTROPENIA [None]
  - PHARYNGITIS [None]
  - SERRATIA INFECTION [None]
